FAERS Safety Report 8551923 (Version 2)
Quarter: 2013Q2

REPORT INFORMATION
  Report Type: Spontaneous
  Country: US (occurrence: US)
  Receive Date: 20120508
  Receipt Date: 20130529
  Transmission Date: 20140414
  Serious: No
  Sender: FDA-Public Use
  Company Number: US-B.I. PHARMACEUTICALS,INC./RIDGEFIELD-2012-BP-09886BP

PATIENT
  Age: 77 Year
  Sex: Female

DRUGS (1)
  1. PRADAXA [Suspect]
     Indication: ATRIAL FIBRILLATION
     Dosage: 300 MG
     Route: 048
     Dates: start: 201101

REACTIONS (6)
  - Ocular hyperaemia [Recovered/Resolved]
  - Hot flush [Unknown]
  - Slow response to stimuli [Unknown]
  - Eye haemorrhage [Recovered/Resolved]
  - Abnormal behaviour [Unknown]
  - Paranoia [Unknown]
